FAERS Safety Report 15594504 (Version 1)
Quarter: 2018Q4

REPORT INFORMATION
  Report Type: Spontaneous
  Country: JP (occurrence: JP)
  Receive Date: 20181107
  Receipt Date: 20181107
  Transmission Date: 20190205
  Serious: Yes (Hospitalization, Other)
  Sender: FDA-Public Use
  Company Number: JP-SHIRE-JP201842902AA

PATIENT
  Age: 9 Year
  Sex: Female

DRUGS (3)
  1. GAMMAGARD S/D [Suspect]
     Active Substance: HUMAN IMMUNOGLOBULIN G
     Indication: DERMATOMYOSITIS
     Dosage: UNK, UNKNOWN
     Route: 042
  2. METHYLPREDNISOLONE. [Concomitant]
     Active Substance: METHYLPREDNISOLONE
     Indication: DERMATOMYOSITIS
     Route: 042
  3. CICLOSPORIN A [Concomitant]
     Active Substance: CYCLOSPORINE
     Indication: DERMATOMYOSITIS

REACTIONS (2)
  - Neuropsychiatric lupus [Recovering/Resolving]
  - Psychiatric symptom [Recovering/Resolving]
